FAERS Safety Report 5149072-X (Version None)
Quarter: 2006Q4

REPORT INFORMATION
  Report Type: 
  Country: None (occurrence: None)
  Receive Date: 20061113
  Receipt Date: 20061026
  Transmission Date: 20070319
  Serious: Yes (Hospitalization)
  Sender: FDA-Public Use
  Company Number: US-BRISTOL-MYERS SQUIBB COMPANY-13566179

PATIENT
  Age: 80 Year
  Sex: Female

DRUGS (7)
  1. COUMADIN [Suspect]
     Route: 048
  2. BLINDED: RASAGILINE MESILATE [Suspect]
     Indication: DEMENTIA ALZHEIMER'S TYPE
     Route: 048
     Dates: start: 20051205
  3. BLINDED: PLACEBO [Suspect]
     Indication: DEMENTIA ALZHEIMER'S TYPE
     Route: 048
     Dates: start: 20051205
  4. DONEPEZIL HCL [Suspect]
     Indication: DEMENTIA ALZHEIMER'S TYPE
     Route: 048
     Dates: start: 20050908
  5. DESONIDE [Concomitant]
     Indication: SKIN NODULE
     Route: 048
     Dates: start: 20060406
  6. ATENOLOL [Concomitant]
     Indication: HYPERTENSION
     Route: 048
     Dates: start: 20060502
  7. HYDROCODONE [Concomitant]
     Indication: MUSCULOSKELETAL PAIN
     Route: 048
     Dates: start: 20060808

REACTIONS (4)
  - COAGULATION TIME PROLONGED [None]
  - HYPOTENSION [None]
  - INTERNATIONAL NORMALISED RATIO DECREASED [None]
  - PEPTIC ULCER HAEMORRHAGE [None]
